FAERS Safety Report 15835382 (Version 1)
Quarter: 2019Q1

REPORT INFORMATION
  Report Type: Spontaneous
  Country: FR (occurrence: FR)
  Receive Date: 20190117
  Receipt Date: 20190117
  Transmission Date: 20190417
  Serious: Yes (Other)
  Sender: FDA-Public Use
  Company Number: FR-DENTSPLY-2019SCDP000007

PATIENT
  Age: 27 Year
  Sex: Male

DRUGS (4)
  1. LEVOCARNIL                         /00878601/ [Concomitant]
     Active Substance: LEVOCARNITINE
     Indication: MUSCLE FATIGUE
     Dosage: 6 UNITS, QD
     Route: 048
  2. XYLOCAINE [Suspect]
     Active Substance: LIDOCAINE HYDROCHLORIDE
     Indication: PAIN
     Dosage: 0.5 ML, QD,FOR 6 TO 8 MONTHS
     Route: 058
  3. BACLOFEN. [Concomitant]
     Active Substance: BACLOFEN
     Indication: MUSCLE CONTRACTIONS INVOLUNTARY
  4. BACLOFEN. [Concomitant]
     Active Substance: BACLOFEN
     Indication: FATIGUE
     Dosage: 50 MG, QD
     Route: 065

REACTIONS (2)
  - Gastrointestinal disorder [None]
  - Off label use [Unknown]
